FAERS Safety Report 7868072-X (Version None)
Quarter: 2011Q4

REPORT INFORMATION
  Report Type: 
  Country: None (occurrence: None)
  Receive Date: 20111028
  Receipt Date: 20111019
  Transmission Date: 20120403
  Serious: Yes (Other)
  Sender: FDA-Public Use
  Company Number: US-ASTRAZENECA-2011SE63393

PATIENT
  Age: 75 Year
  Sex: Female

DRUGS (2)
  1. BENICAR [Concomitant]
  2. NEXIUM [Suspect]
     Route: 048

REACTIONS (6)
  - SLEEP APNOEA SYNDROME [None]
  - HYPERTENSION [None]
  - ASTHMA [None]
  - INTRACARDIAC THROMBUS [None]
  - DYSPNOEA [None]
  - SPEECH DISORDER [None]
